APPROVED DRUG PRODUCT: PHYTONADIONE
Active Ingredient: PHYTONADIONE
Strength: 1MG/0.5ML
Dosage Form/Route: INJECTABLE;INJECTION
Application: A212424 | Product #001
Applicant: CIPLA LTD
Approved: Apr 22, 2022 | RLD: No | RS: No | Type: DISCN